FAERS Safety Report 7377011-X (Version None)
Quarter: 2011Q1

REPORT INFORMATION
  Report Type: 
  Country: None (occurrence: None)
  Receive Date: 20110328
  Receipt Date: 20110316
  Transmission Date: 20110831
  Serious: Yes (Other)
  Sender: FDA-Public Use
  Company Number: US-BIOGENIDEC-2010BI029935

PATIENT
  Sex: Female

DRUGS (3)
  1. TYSABRI [Suspect]
     Route: 042
     Dates: start: 20101111, end: 20101111
  2. TYSABRI [Suspect]
     Indication: MULTIPLE SCLEROSIS
     Route: 042
     Dates: start: 20070220, end: 20091015
  3. TYSABRI [Suspect]
     Route: 042
     Dates: start: 20110308

REACTIONS (6)
  - INFLUENZA LIKE ILLNESS [None]
  - EOSINOPHILIC OESOPHAGITIS [None]
  - FATIGUE [None]
  - ANAPHYLACTIC REACTION [None]
  - HYPERSENSITIVITY [None]
  - URINARY TRACT INFECTION [None]
